FAERS Safety Report 7047882-5 (Version None)
Quarter: 2010Q4

REPORT INFORMATION
  Report Type: 
  Country: None (occurrence: None)
  Receive Date: 20101014
  Receipt Date: 20101014
  Transmission Date: 20110411
  Serious: Yes (Hospitalization)
  Sender: FDA-Public Use
  Company Number: None

PATIENT
  Sex: Male
  Weight: 88.4 kg

DRUGS (4)
  1. BENDAMUSTINE .3 MG/DL MILLENNIUM [Suspect]
     Indication: B-CELL SMALL LYMPHOCYTIC LYMPHOMA
     Dosage: 90 MG/M2 DAY 1 AND 2 IV
     Route: 042
     Dates: start: 20100908, end: 20100909
  2. BENDAMUSTINE .3 MG/DL MILLENNIUM [Suspect]
     Indication: CHRONIC LYMPHOCYTIC LEUKAEMIA
     Dosage: 90 MG/M2 DAY 1 AND 2 IV
     Route: 042
     Dates: start: 20100908, end: 20100909
  3. RITUXAN [Suspect]
     Indication: B-CELL SMALL LYMPHOCYTIC LYMPHOMA
     Dosage: 375 MG/M2 DAY 1 IV
     Route: 042
     Dates: start: 20100908
  4. RITUXAN [Suspect]
     Indication: CHRONIC LYMPHOCYTIC LEUKAEMIA
     Dosage: 375 MG/M2 DAY 1 IV
     Route: 042
     Dates: start: 20100908

REACTIONS (2)
  - NEUTROPENIC COLITIS [None]
  - PNEUMATOSIS INTESTINALIS [None]
